FAERS Safety Report 14441973 (Version 2)
Quarter: 2019Q3

REPORT INFORMATION
  Report Type: Report from Study
  Country: US (occurrence: US)
  Receive Date: 20180125
  Receipt Date: 20190806
  Transmission Date: 20191004
  Serious: Yes (Death, Other)
  Sender: FDA-Public Use
  Company Number: US-REGENERON PHARMACEUTICALS, INC.-2018-11741

PATIENT

DRUGS (18)
  1. EYLEA [Suspect]
     Active Substance: AFLIBERCEPT
     Indication: NEOVASCULAR AGE-RELATED MACULAR DEGENERATION
     Dosage: BILATERAL (OU)
     Dates: start: 20140918, end: 20161201
  2. EYLEA [Suspect]
     Active Substance: AFLIBERCEPT
     Dosage: BILATERAL (OU)
     Dates: start: 20141222, end: 20141222
  3. EYLEA [Suspect]
     Active Substance: AFLIBERCEPT
     Dosage: BILATERAL (OU)
     Dates: start: 20160630, end: 20160630
  4. EYLEA [Suspect]
     Active Substance: AFLIBERCEPT
     Indication: CHOROIDAL NEOVASCULARISATION
     Dosage: BILATERAL (OU)
     Dates: start: 20141105, end: 20141105
  5. EYLEA [Suspect]
     Active Substance: AFLIBERCEPT
     Dosage: BILATERAL (OU)
     Dates: start: 20150220, end: 20150220
  6. EYLEA [Suspect]
     Active Substance: AFLIBERCEPT
     Dosage: BILATERAL (OU)
     Dates: start: 20150630, end: 20150630
  7. EYLEA [Suspect]
     Active Substance: AFLIBERCEPT
     Dosage: BILATERAL (OU)
     Dates: start: 20160407, end: 20160407
  8. EYLEA [Suspect]
     Active Substance: AFLIBERCEPT
     Dosage: BILATERAL (OU)
     Dates: start: 20160520, end: 20160520
  9. EYLEA [Suspect]
     Active Substance: AFLIBERCEPT
     Dosage: BILATERAL (OU)
     Dates: start: 20151014, end: 20151014
  10. EYLEA [Suspect]
     Active Substance: AFLIBERCEPT
     Dosage: BILATERAL (OU)
     Dates: start: 20150910, end: 20150910
  11. EYLEA [Suspect]
     Active Substance: AFLIBERCEPT
     Dosage: BILATERAL (OU)
     Dates: start: 20160922, end: 20160922
  12. EYLEA [Suspect]
     Active Substance: AFLIBERCEPT
     Dosage: BILATERAL (OU)
     Dates: start: 20150730, end: 20150730
  13. EYLEA [Suspect]
     Active Substance: AFLIBERCEPT
     Dosage: BILATERAL (OU)
     Dates: start: 20151223, end: 20151223
  14. EYLEA [Suspect]
     Active Substance: AFLIBERCEPT
     Dosage: BILATERAL (OU)
     Dates: start: 20160229, end: 20160229
  15. EYLEA [Suspect]
     Active Substance: AFLIBERCEPT
     Dosage: BILATERAL (OU), LAST DOSE
     Dates: start: 20161201, end: 20161201
  16. EYLEA [Suspect]
     Active Substance: AFLIBERCEPT
     Dosage: BILATERAL (OU)
     Dates: start: 20160122, end: 20160122
  17. EYLEA [Suspect]
     Active Substance: AFLIBERCEPT
     Dosage: BILATERAL (OU)
     Dates: start: 20160804, end: 20160804
  18. EYLEA [Suspect]
     Active Substance: AFLIBERCEPT
     Dosage: BILATERAL (OU)
     Dates: start: 20161027, end: 20161027

REACTIONS (1)
  - Death [Fatal]
